FAERS Safety Report 9225793 (Version 4)
Quarter: 2013Q3

REPORT INFORMATION
  Report Type: Spontaneous
  Country: US (occurrence: US)
  Receive Date: 20130411
  Receipt Date: 20130823
  Transmission Date: 20140515
  Serious: Yes (Other)
  Sender: FDA-Public Use
  Company Number: US-BAYER-2013-043874

PATIENT
  Age: 30 Year
  Sex: Female

DRUGS (6)
  1. MIRENA [Suspect]
     Indication: CONTRACEPTION
     Dosage: 20 MCG/24HR, CONT
     Route: 015
     Dates: start: 201211, end: 20130402
  2. ZITHROMAX Z-PACK [Suspect]
     Dosage: UNK
     Dates: start: 20130319
  3. ZITROMAX [Concomitant]
     Dosage: UNK
     Dates: start: 20111126
  4. ZITROMAX [Concomitant]
  5. METRONIDAZOLE [Concomitant]
     Dosage: 500 MG, BID
     Dates: start: 20130319
  6. CLEOCIN [Concomitant]
     Dosage: 2 %, UNK
     Route: 067

REACTIONS (10)
  - Pelvic infection [Recovering/Resolving]
  - Genital haemorrhage [Recovering/Resolving]
  - Pelvic inflammatory disease [Recovering/Resolving]
  - Adnexa uteri pain [Recovering/Resolving]
  - Adnexa uteri pain [Recovering/Resolving]
  - Infection [Recovered/Resolved]
  - Abdominal pain [Recovered/Resolved]
  - Dyspareunia [None]
  - Stress [None]
  - Abdominal discomfort [None]
